FAERS Safety Report 18447972 (Version 3)
Quarter: 2021Q3

REPORT INFORMATION
  Report Type: Report from Study
  Country: JP (occurrence: JP)
  Receive Date: 20201030
  Receipt Date: 20210820
  Transmission Date: 20211014
  Serious: Yes (Death, Life-Threatening, Hospitalization, Other)
  Sender: FDA-Public Use
  Company Number: JP-JNJFOC-A-CH2017-148392

PATIENT
  Age: 38 Year
  Sex: Male

DRUGS (94)
  1. PREDONINE [Concomitant]
     Active Substance: PREDNISOLONE
     Route: 048
     Dates: start: 20151028, end: 20160222
  2. BAKTAR [Concomitant]
     Active Substance: SULFAMETHOXAZOLE\TRIMETHOPRIM
     Indication: PROPHYLAXIS
     Route: 048
     Dates: end: 20160223
  3. LANSOPRAZOLE. [Concomitant]
     Active Substance: LANSOPRAZOLE
     Indication: PROPHYLAXIS
     Route: 048
     Dates: end: 20161107
  4. UPTRAVI [Concomitant]
     Active Substance: SELEXIPAG
     Route: 048
     Dates: start: 20170704, end: 20180203
  5. CEFAZOLIN SODIUM. [Concomitant]
     Active Substance: CEFAZOLIN SODIUM
     Indication: PROPHYLAXIS
     Route: 042
     Dates: start: 20170126, end: 20170128
  6. SAMSCA [Concomitant]
     Active Substance: TOLVAPTAN
     Indication: RIGHT VENTRICULAR FAILURE
     Dosage: 3.75?15MG
     Route: 048
     Dates: start: 20160909, end: 20180203
  7. CEFACLOR. [Concomitant]
     Active Substance: CEFACLOR
     Indication: PROPHYLAXIS
     Route: 048
     Dates: start: 20161005, end: 20161010
  8. TAZOPIPE [Concomitant]
     Active Substance: PIPERACILLIN SODIUM\TAZOBACTAM SODIUM
     Route: 042
     Dates: start: 20171229, end: 20180115
  9. FESIN [SACCHARATED IRON OXIDE] [Concomitant]
     Active Substance: IRON SUCROSE
     Indication: ANAEMIA
     Route: 042
     Dates: start: 20171202, end: 20171225
  10. SULPERAZON [Concomitant]
     Active Substance: CEFOPERAZONE SODIUM\SULBACTAM SODIUM
     Indication: DEVICE RELATED INFECTION
     Route: 042
     Dates: start: 20171118, end: 20171118
  11. EPOPROSTENOL ACT [Suspect]
     Active Substance: EPOPROSTENOL
     Indication: PULMONARY ARTERIAL HYPERTENSION
     Dosage: 46.72NG/KG/MIN
     Route: 041
     Dates: end: 20160313
  12. EPOPROSTENOL ACT [Suspect]
     Active Substance: EPOPROSTENOL
     Dosage: 55.3?63NG/KG/MIN
     Route: 041
     Dates: end: 201608
  13. FUROSEMIDE. [Concomitant]
     Active Substance: FUROSEMIDE
     Indication: RIGHT VENTRICULAR FAILURE
     Route: 048
  14. LUPRAC [Concomitant]
     Active Substance: TORSEMIDE
     Indication: RIGHT VENTRICULAR FAILURE
     Route: 048
     Dates: end: 20160916
  15. GLUCONSAN K [Concomitant]
     Active Substance: POTASSIUM GLUCONATE
     Indication: HYPOKALAEMIA
     Dosage: 2~3T
     Route: 048
     Dates: end: 20171121
  16. ADONA [CARBAZOCHROME SODIUM SULFONATE] [Concomitant]
     Active Substance: CARBAZOCHROME SODIUM SULFONATE
     Indication: PROPHYLAXIS
     Route: 048
     Dates: start: 20161110, end: 20161116
  17. THYRADIN S [Concomitant]
     Active Substance: LEVOTHYROXINE SODIUM
     Indication: HYPOTHYROIDISM
     Route: 048
     Dates: start: 20151006, end: 20151019
  18. THYRADIN S [Concomitant]
     Active Substance: LEVOTHYROXINE SODIUM
     Indication: HYPOTHYROIDISM
     Route: 048
     Dates: start: 20160107, end: 20160219
  19. CEFAZOLIN SODIUM. [Concomitant]
     Active Substance: CEFAZOLIN SODIUM
     Indication: PROPHYLAXIS
     Route: 042
     Dates: start: 20160803, end: 20160808
  20. CEFAZOLIN SODIUM. [Concomitant]
     Active Substance: CEFAZOLIN SODIUM
     Indication: PROPHYLAXIS
     Route: 042
     Dates: start: 20161031, end: 20161101
  21. LASIX [Concomitant]
     Active Substance: FUROSEMIDE
     Indication: RIGHT VENTRICULAR FAILURE
     Dosage: 20?40MG/DAY
     Route: 048
     Dates: start: 20161108, end: 20161122
  22. LASIX [Concomitant]
     Active Substance: FUROSEMIDE
     Dosage: 300?10MG
     Route: 042
     Dates: start: 20171119, end: 20180203
  23. LEVOFLOXACIN HEMIHYDRATE [Concomitant]
     Active Substance: LEVOFLOXACIN
     Indication: PROPHYLAXIS
     Route: 048
     Dates: start: 20180116, end: 20180122
  24. LEPETAN [Concomitant]
     Active Substance: BUPRENORPHINE HYDROCHLORIDE
     Indication: SEDATION
     Route: 042
     Dates: start: 20180202, end: 20180202
  25. REVATIO [Suspect]
     Active Substance: SILDENAFIL CITRATE
     Indication: PULMONARY ARTERIAL HYPERTENSION
     Route: 048
     Dates: start: 20160419, end: 20180203
  26. FUROSEMIDE. [Concomitant]
     Active Substance: FUROSEMIDE
     Route: 048
     Dates: start: 20160301, end: 20160309
  27. FUROSEMIDE. [Concomitant]
     Active Substance: FUROSEMIDE
     Route: 048
     Dates: start: 20160815, end: 20160916
  28. LANSOPRAZOLE. [Concomitant]
     Active Substance: LANSOPRAZOLE
     Route: 048
     Dates: start: 20170602, end: 20170810
  29. PRIMPERAN [Concomitant]
     Active Substance: METOCLOPRAMIDE HYDROCHLORIDE
     Indication: PROPHYLAXIS
     Route: 048
     Dates: end: 20161116
  30. THYRADIN S [Concomitant]
     Active Substance: LEVOTHYROXINE SODIUM
     Indication: HYPOTHYROIDISM
     Route: 048
     Dates: start: 20151020, end: 20151028
  31. THYRADIN S [Concomitant]
     Active Substance: LEVOTHYROXINE SODIUM
     Indication: HYPOTHYROIDISM
     Dosage: 162.5?175G Q.D.
     Route: 048
     Dates: start: 20160221, end: 20160322
  32. CEFZON [CEFTAZIDIME] [Concomitant]
     Active Substance: CEFTAZIDIME
     Indication: PROPHYLAXIS
     Route: 048
     Dates: start: 20170703, end: 20170709
  33. BOSMIN [EPINEPHRINE] [Concomitant]
     Active Substance: EPINEPHRINE
     Indication: RIGHT VENTRICULAR FAILURE
     Dosage: 0.023GAMMA
     Route: 042
     Dates: start: 20180130, end: 20180203
  34. SOLU?CORTEF [Concomitant]
     Active Substance: HYDROCORTISONE SODIUM SUCCINATE
     Route: 042
     Dates: start: 20171208, end: 20171217
  35. ATARAX?P [HYDROXYZINE HYDROCHLORIDE] [Concomitant]
     Indication: BILIARY COLIC
     Route: 042
     Dates: start: 20180202, end: 20180202
  36. NORADRENALINE [NOREPINEPHRINE] [Concomitant]
     Active Substance: NOREPINEPHRINE
     Route: 042
     Dates: start: 20180203, end: 20180203
  37. DOPAMINE [Concomitant]
     Active Substance: DOPAMINE HYDROCHLORIDE
     Indication: RIGHT VENTRICULAR FAILURE
     Dosage: 3.6GAMMA
     Route: 042
     Dates: start: 20180116, end: 20180130
  38. DOPAMINE [Concomitant]
     Active Substance: DOPAMINE HYDROCHLORIDE
     Indication: SEPTIC SHOCK
     Dosage: 5?2.5GAMMA
     Route: 042
     Dates: start: 20171118, end: 20171118
  39. NEUTROGIN [Concomitant]
     Active Substance: LENOGRASTIM
     Indication: GRANULOCYTE COUNT DECREASED
     Route: 042
     Dates: start: 20180116, end: 20180116
  40. EPOPROSTENOL ACT [Suspect]
     Active Substance: EPOPROSTENOL
     Dosage: 49.23 ? 53.8NG/KG/MIN
     Route: 041
     Dates: end: 20160515
  41. EPOPROSTENOL ACT [Suspect]
     Active Substance: EPOPROSTENOL
     Dosage: 62 NG/KG, PER MIN
     Route: 041
  42. EPOPROSTENOL ACT [Suspect]
     Active Substance: EPOPROSTENOL
     Dosage: 63NG/KG/MIN
     Route: 041
     Dates: end: 20180203
  43. DOBUTAMINE HYDROCHLORIDE. [Suspect]
     Active Substance: DOBUTAMINE HYDROCHLORIDE
     Dosage: 2.4GAMMA
     Route: 042
     Dates: start: 20171128, end: 20180116
  44. ADCIRCA [Concomitant]
     Active Substance: TADALAFIL
     Indication: PULMONARY ARTERIAL HYPERTENSION
     Route: 048
     Dates: end: 20180203
  45. FUROSEMIDE. [Concomitant]
     Active Substance: FUROSEMIDE
     Route: 048
     Dates: end: 20160814
  46. FUROSEMIDE. [Concomitant]
     Active Substance: FUROSEMIDE
     Dosage: 40?80MG
     Route: 048
     Dates: start: 20160917
  47. PREDONINE [Concomitant]
     Active Substance: PREDNISOLONE
     Indication: ADRENAL INSUFFICIENCY
     Route: 048
     Dates: start: 20151006, end: 20151019
  48. PREDONINE [Concomitant]
     Active Substance: PREDNISOLONE
     Route: 048
     Dates: end: 20171119
  49. ADONA [CARBAZOCHROME SODIUM SULFONATE] [Concomitant]
     Active Substance: CARBAZOCHROME SODIUM SULFONATE
     Route: 048
     Dates: end: 20171121
  50. THYRADIN S [Concomitant]
     Active Substance: LEVOTHYROXINE SODIUM
     Indication: HYPOTHYROIDISM
     Route: 048
     Dates: start: 20160503
  51. THYRADIN S [Concomitant]
     Active Substance: LEVOTHYROXINE SODIUM
     Indication: HYPOTHYROIDISM
     Dosage: 87.5?100G Q.D.
     Route: 048
     Dates: end: 20180203
  52. HANP [Concomitant]
     Active Substance: CARPERITIDE
     Indication: RIGHT VENTRICULAR FAILURE
     Route: 042
     Dates: start: 20160908, end: 20161010
  53. HANP [Concomitant]
     Active Substance: CARPERITIDE
     Indication: RIGHT VENTRICULAR FAILURE
     Route: 042
     Dates: start: 20161117, end: 20170111
  54. TRANEXAMIC ACID. [Concomitant]
     Active Substance: TRANEXAMIC ACID
     Indication: HAEMOPTYSIS
     Route: 042
     Dates: start: 20161110, end: 20161116
  55. CLINDAMYCIN HYDROCHLORIDE. [Concomitant]
     Active Substance: CLINDAMYCIN HYDROCHLORIDE
     Indication: PROPHYLAXIS
     Route: 048
     Dates: start: 20170126, end: 20170126
  56. OMEPRAZOLE. [Concomitant]
     Active Substance: OMEPRAZOLE
     Indication: PROPHYLAXIS
     Route: 042
     Dates: start: 20171119, end: 20171128
  57. SOLU?CORTEF [Concomitant]
     Active Substance: HYDROCORTISONE SODIUM SUCCINATE
     Indication: ADRENAL INSUFFICIENCY
     Dosage: 100?200MG
     Route: 042
     Dates: start: 20171119, end: 20171127
  58. SOLU?CORTEF [Concomitant]
     Active Substance: HYDROCORTISONE SODIUM SUCCINATE
     Route: 042
     Dates: start: 20180131, end: 20180131
  59. ANAEMETRO [Concomitant]
     Active Substance: METRONIDAZOLE
     Indication: PSEUDOMEMBRANOUS COLITIS
     Route: 042
     Dates: start: 20180203, end: 20180203
  60. NORADRENALINE [NOREPINEPHRINE] [Concomitant]
     Active Substance: NOREPINEPHRINE
     Indication: SEPTIC SHOCK
     Dosage: 0.05GAMMA
     Route: 042
     Dates: start: 20171119, end: 20171120
  61. OPSUMIT [Suspect]
     Active Substance: MACITENTAN
     Indication: PULMONARY ARTERIAL HYPERTENSION
     Dosage: IN THE MORNING
     Route: 048
     Dates: start: 20150731, end: 20180203
  62. DOBUTAMINE HYDROCHLORIDE. [Suspect]
     Active Substance: DOBUTAMINE HYDROCHLORIDE
     Indication: RIGHT VENTRICULAR FAILURE
     Route: 042
     Dates: start: 20160728, end: 20160824
  63. DOBUTAMINE HYDROCHLORIDE. [Suspect]
     Active Substance: DOBUTAMINE HYDROCHLORIDE
     Dosage: 2?10MGGAMMA
     Route: 042
     Dates: start: 20161010, end: 20170109
  64. PREDONINE [Concomitant]
     Active Substance: PREDNISOLONE
     Indication: SILENT THYROIDITIS
     Route: 048
     Dates: end: 20151015
  65. PREDONINE [Concomitant]
     Active Substance: PREDNISOLONE
     Dosage: 5?10MG/DAY
     Route: 042
     Dates: start: 20171219, end: 20180203
  66. TRANSAMIN [Concomitant]
     Active Substance: TRANEXAMIC ACID
     Indication: PROPHYLAXIS
     Route: 048
     Dates: end: 20171121
  67. BONALON [Concomitant]
     Active Substance: ALENDRONATE SODIUM
     Indication: PROPHYLAXIS
     Route: 048
     Dates: end: 20160223
  68. THYRADIN S [Concomitant]
     Active Substance: LEVOTHYROXINE SODIUM
     Indication: HYPOTHYROIDISM
     Route: 048
     Dates: start: 20151029, end: 20160106
  69. THYRADIN S [Concomitant]
     Active Substance: LEVOTHYROXINE SODIUM
     Indication: HYPOTHYROIDISM
     Dosage: 50?87.5G Q.D.
     Route: 048
  70. UPTRAVI [Concomitant]
     Active Substance: SELEXIPAG
     Route: 048
     Dates: start: 20170124, end: 20170703
  71. TAKECAB [Concomitant]
     Active Substance: VONOPRAZAN FUMARATE
     Indication: PROPHYLAXIS
     Route: 048
     Dates: start: 20161107, end: 20170111
  72. POTASSIUM CHLORIDE. [Concomitant]
     Active Substance: POTASSIUM CHLORIDE
     Indication: HYPOKALAEMIA
     Dosage: 20?40MEQ/DAY
     Route: 048
     Dates: start: 20161111, end: 20161209
  73. PLATELETS [Concomitant]
     Active Substance: HUMAN PLATELET, ALLOGENIC
     Indication: DISSEMINATED INTRAVASCULAR COAGULATION
     Dosage: 20E
     Route: 042
     Dates: start: 20171119, end: 20171119
  74. SOSEGON [PENTAZOCINE] [Concomitant]
     Active Substance: PENTAZOCINE
     Indication: BILIARY COLIC
     Route: 042
     Dates: start: 20180107, end: 20180202
  75. ACELIO [Concomitant]
     Active Substance: ACETAMINOPHEN
     Indication: BILIARY COLIC
     Route: 042
     Dates: start: 20180202, end: 20180202
  76. REVATIO [Suspect]
     Active Substance: SILDENAFIL CITRATE
     Indication: PULMONARY ARTERIAL HYPERTENSION
     Dosage: 40~50MG/DAY
     Route: 048
     Dates: start: 20160405, end: 20160410
  77. FUROSEMIDE. [Concomitant]
     Active Substance: FUROSEMIDE
     Route: 048
     Dates: start: 20160405
  78. FUROSEMIDE. [Concomitant]
     Active Substance: FUROSEMIDE
     Dosage: 40?100MG
     Route: 042
     Dates: start: 20171118, end: 20180203
  79. FEBURIC [Concomitant]
     Active Substance: FEBUXOSTAT
     Indication: HYPERURICAEMIA
     Route: 048
     Dates: end: 20171121
  80. THYRADIN S [Concomitant]
     Active Substance: LEVOTHYROXINE SODIUM
     Indication: HYPOTHYROIDISM
     Dosage: 150?75G Q.D.
     Route: 048
     Dates: start: 20160323, end: 20160502
  81. TAKECAB [Concomitant]
     Active Substance: VONOPRAZAN FUMARATE
     Indication: PROPHYLAXIS
     Route: 048
     Dates: start: 20170810, end: 20180203
  82. PRECEDEX [Concomitant]
     Active Substance: DEXMEDETOMIDINE HYDROCHLORIDE
     Indication: SEDATION
     Dosage: 1ML/H
     Route: 042
     Dates: start: 20180202, end: 20180203
  83. REVATIO [Suspect]
     Active Substance: SILDENAFIL CITRATE
     Indication: PULMONARY ARTERIAL HYPERTENSION
     Route: 048
     Dates: start: 20160329, end: 20160404
  84. SPIRONOLACTONE. [Concomitant]
     Active Substance: SPIRONOLACTONE
     Indication: RIGHT VENTRICULAR FAILURE
     Dosage: 25?50MG
     Route: 048
     Dates: end: 20180203
  85. UPTRAVI [Concomitant]
     Active Substance: SELEXIPAG
     Indication: PULMONARY ARTERIAL HYPERTENSION
     Route: 048
     Dates: start: 20170117, end: 20170123
  86. HANP [Concomitant]
     Active Substance: CARPERITIDE
     Indication: RIGHT VENTRICULAR FAILURE
     Route: 042
     Dates: start: 20171225, end: 20171227
  87. TAZOPIPE [Concomitant]
     Active Substance: PIPERACILLIN SODIUM\TAZOBACTAM SODIUM
     Indication: PROPHYLAXIS
     Route: 042
     Dates: start: 20171205, end: 20171219
  88. OXYGEN. [Concomitant]
     Active Substance: OXYGEN
     Dosage: DOSE UNKNOWN
     Route: 055
  89. PLATELETS [Concomitant]
     Active Substance: HUMAN PLATELET, ALLOGENIC
     Dosage: 20E
     Route: 042
     Dates: start: 20180129, end: 20180129
  90. RECOMODULIN [Concomitant]
     Active Substance: THROMBOMODULIN ALFA
     Indication: DISSEMINATED INTRAVASCULAR COAGULATION
     Dosage: 25600E
     Route: 042
     Dates: start: 20171119, end: 20171121
  91. SPIRONOLACTONE. [Concomitant]
     Active Substance: SPIRONOLACTONE
     Indication: RIGHT VENTRICULAR FAILURE
     Route: 048
  92. MEROPENEM. [Concomitant]
     Active Substance: MEROPENEM
     Indication: DEVICE RELATED INFECTION
     Route: 042
     Dates: start: 20171119, end: 20171203
  93. GLOBULIN [Concomitant]
     Indication: DISSEMINATED INTRAVASCULAR COAGULATION
     Route: 042
     Dates: start: 20171119, end: 20171120
  94. VANCOMYCIN [Concomitant]
     Active Substance: VANCOMYCIN
     Indication: DEVICE RELATED INFECTION
     Dosage: 0.5?1G
     Route: 042
     Dates: start: 20171119, end: 20171127

REACTIONS (18)
  - Haemoptysis [Recovered/Resolved]
  - Pneumonia [Recovered/Resolved]
  - Thrombocytopenia [Recovering/Resolving]
  - Sepsis [Recovered/Resolved]
  - Haematochezia [Recovered/Resolved]
  - Septic shock [Recovered/Resolved]
  - Disseminated intravascular coagulation [Recovered/Resolved]
  - Right ventricular failure [Fatal]
  - Anaemia [Recovered/Resolved]
  - Biliary colic [Recovering/Resolving]
  - Shock [Recovered/Resolved]
  - Adrenal insufficiency [Not Recovered/Not Resolved]
  - Device related infection [Recovered/Resolved]
  - Syncope [Recovered/Resolved]
  - Device related infection [Recovered/Resolved]
  - Granulocyte count decreased [Recovered/Resolved]
  - Pseudomembranous colitis [Not Recovered/Not Resolved]
  - Rash [Recovered/Resolved]

NARRATIVE: CASE EVENT DATE: 201602
